FAERS Safety Report 7211273-4 (Version None)
Quarter: 2011Q1

REPORT INFORMATION
  Report Type: 
  Country: None (occurrence: None)
  Receive Date: 20110105
  Receipt Date: 20101119
  Transmission Date: 20110831
  Serious: No
  Sender: FDA-Public Use
  Company Number: US-JNJFOC-20101007866

PATIENT
  Sex: Female
  Weight: 70.76 kg

DRUGS (1)
  1. INVEGA SUSTENNA [Suspect]
     Indication: PSYCHOTIC DISORDER
     Route: 030

REACTIONS (1)
  - GALACTORRHOEA [None]
